FAERS Safety Report 6298045-2 (Version None)
Quarter: 2009Q3

REPORT INFORMATION
  Report Type: 
  Country: None (occurrence: None)
  Receive Date: 20090804
  Receipt Date: 20090804
  Transmission Date: 20100115
  Serious: Yes (Other)
  Sender: FDA-Public Use
  Company Number: None

PATIENT
  Age: 23 Year
  Sex: Female
  Weight: 72.5755 kg

DRUGS (1)
  1. YAZ [Suspect]
     Dosage: ONCE DAILY PO
     Route: 048
     Dates: start: 20090705, end: 20090731

REACTIONS (2)
  - ACNE [None]
  - HEADACHE [None]
